FAERS Safety Report 16091849 (Version 1)
Quarter: 2019Q1

REPORT INFORMATION
  Report Type: Spontaneous
  Country: ES (occurrence: ES)
  Receive Date: 20190319
  Receipt Date: 20190319
  Transmission Date: 20190418
  Serious: Yes (Other)
  Sender: FDA-Public Use
  Company Number: ES-BAYER-2019-022223

PATIENT
  Sex: Male

DRUGS (1)
  1. STIVARGA [Suspect]
     Active Substance: REGORAFENIB
     Indication: RECTAL ADENOCARCINOMA
     Dosage: UNK
     Dates: start: 20151015

REACTIONS (7)
  - Catarrh [Recovered/Resolved]
  - Gastrooesophageal reflux disease [None]
  - Skin toxicity [Recovering/Resolving]
  - Carcinoembryonic antigen increased [None]
  - Hypophosphataemia [None]
  - Cough [None]
  - Palmar-plantar erythrodysaesthesia syndrome [None]
